FAERS Safety Report 6343788-5 (Version None)
Quarter: 2009Q3

REPORT INFORMATION
  Report Type: 
  Country: None (occurrence: None)
  Receive Date: 20090908
  Receipt Date: 20090828
  Transmission Date: 20100115
  Serious: Yes (Hospitalization)
  Sender: FDA-Public Use
  Company Number: B0591198A

PATIENT
  Sex: Male
  Weight: 27.2 kg

DRUGS (5)
  1. ZIDOVUDINE [Suspect]
     Indication: HIV INFECTION
     Route: 065
  2. 3TC [Suspect]
     Indication: HIV INFECTION
     Route: 065
  3. ABACAVIR [Suspect]
     Indication: HIV INFECTION
     Route: 065
  4. COTRIM [Concomitant]
     Route: 065
  5. MULTI-VITAMINS [Concomitant]
     Route: 065

REACTIONS (6)
  - COUGH [None]
  - HEADACHE [None]
  - HYPERTENSION [None]
  - INFLUENZA [None]
  - RHINORRHOEA [None]
  - UPPER RESPIRATORY TRACT INFECTION [None]
